FAERS Safety Report 19253350 (Version 1)
Quarter: 2021Q2

REPORT INFORMATION
  Report Type: Spontaneous
  Country: US (occurrence: US)
  Receive Date: 20210513
  Receipt Date: 20210513
  Transmission Date: 20210717
  Serious: No
  Sender: FDA-Public Use
  Company Number: US-PFIZER INC-2021486745

PATIENT
  Age: 61 Year
  Sex: Male
  Weight: 78.91 kg

DRUGS (1)
  1. SUTENT [Suspect]
     Active Substance: SUNITINIB MALATE
     Indication: RENAL CANCER
     Dosage: 50 MG, CYCLIC (DAILY 4 WEEKS ON, THEN 2 WEEKS OFF)
     Route: 048
     Dates: start: 201003

REACTIONS (4)
  - Tongue disorder [Unknown]
  - Fatigue [Unknown]
  - Oral disorder [Unknown]
  - Gingival disorder [Unknown]
